FAERS Safety Report 4585966-1 (Version None)
Quarter: 2005Q1

REPORT INFORMATION
  Report Type: 
  Country: None (occurrence: None)
  Receive Date: 20050125
  Receipt Date: 20040921
  Transmission Date: 20050727
  Serious: No
  Sender: FDA-Public Use
  Company Number: USA040669615

PATIENT
  Age: 73 Year
  Sex: Female
  Weight: 65 kg

DRUGS (9)
  1. FORTEO [Suspect]
     Indication: OSTEOPOROSIS
     Dosage: 20 UG/ 1 DAY
     Dates: start: 20040501
  2. CLOPIDOGREL BISULFATE [Concomitant]
  3. CLIDINIUM BROMIDE [Concomitant]
  4. CHLORDIAZEPOXIDE HCL [Concomitant]
  5. LORAZEPAM [Concomitant]
  6. AMLODIPINE [Concomitant]
  7. DIGOXIN [Concomitant]
  8. PRAVACHOL [Concomitant]
  9. ATIVAN [Concomitant]

REACTIONS (13)
  - ABDOMINAL PAIN UPPER [None]
  - ANXIETY [None]
  - BACK PAIN [None]
  - COUGH [None]
  - DISTURBANCE IN ATTENTION [None]
  - INJECTION SITE ERYTHEMA [None]
  - INSOMNIA [None]
  - NASOPHARYNGITIS [None]
  - NAUSEA [None]
  - NERVOUSNESS [None]
  - PHARYNGOLARYNGEAL PAIN [None]
  - SINUS CONGESTION [None]
  - URINARY TRACT INFECTION [None]
